FAERS Safety Report 8006810-6 (Version None)
Quarter: 2011Q4

REPORT INFORMATION
  Report Type: 
  Country: None (occurrence: None)
  Receive Date: 20111227
  Receipt Date: 20111216
  Transmission Date: 20120403
  Serious: No
  Sender: FDA-Public Use
  Company Number: PHHY2011JP107586

PATIENT
  Age: 58 Year
  Sex: Female
  Weight: 61.8 kg

DRUGS (5)
  1. LEVOMEPROMAZINE HYDROCHLORIDE [Concomitant]
     Indication: DEPRESSION
     Route: 048
  2. CARBAMAZEPINE [Suspect]
     Indication: DEPRESSION
     Route: 048
  3. BROMAZEPAM [Concomitant]
     Indication: DEPRESSION
     Route: 048
  4. CHLORPROMAZINE HYDROCHLORIDE [Concomitant]
     Indication: DEPRESSION
     Route: 048
  5. FLUNITRAZEPAM [Concomitant]
     Indication: DEPRESSION
     Route: 048

REACTIONS (2)
  - HIRSUTISM [None]
  - ANDROGENETIC ALOPECIA [None]
